FAERS Safety Report 9426801 (Version 1)
Quarter: 2013Q3

REPORT INFORMATION
  Report Type: Spontaneous
  Country: US (occurrence: US)
  Receive Date: 20130730
  Receipt Date: 20130730
  Transmission Date: 20140515
  Serious: Yes (Other)
  Sender: FDA-Public Use
  Company Number: US-SANOFI-AVENTIS-2012SA084891

PATIENT
  Age: 37 Year
  Sex: Female

DRUGS (1)
  1. AMBIEN [Suspect]
     Indication: INSOMNIA
     Route: 048
     Dates: start: 2010

REACTIONS (8)
  - Palpitations [Unknown]
  - Drug dependence [Unknown]
  - Night sweats [Unknown]
  - Anxiety [Unknown]
  - Sleep terror [Unknown]
  - Vertigo [Unknown]
  - Hangover [Unknown]
  - Headache [Unknown]
